FAERS Safety Report 10039431 (Version 2)
Quarter: 2014Q2

REPORT INFORMATION
  Report Type: Spontaneous
  Country: GB (occurrence: GB)
  Receive Date: 20140326
  Receipt Date: 20140404
  Transmission Date: 20141212
  Serious: Yes (Other)
  Sender: FDA-Public Use
  Company Number: PHHY2014GB031532

PATIENT
  Age: 63 Year
  Sex: Male
  Weight: 114.3 kg

DRUGS (5)
  1. SIMVASTATIN [Suspect]
     Indication: HYPERCHOLESTEROLAEMIA
     Dosage: 20 MG, UNK
     Route: 048
     Dates: start: 19980101, end: 20140304
  2. AMLODIPINE [Concomitant]
  3. ASPIRIN COATED [Concomitant]
  4. DOXAZOSIN [Concomitant]
  5. BISOPROLOL [Concomitant]

REACTIONS (3)
  - Decreased interest [Unknown]
  - Asthenia [Not Recovered/Not Resolved]
  - Fatigue [Not Recovered/Not Resolved]
